FAERS Safety Report 6873813-4 (Version None)
Quarter: 2010Q3

REPORT INFORMATION
  Report Type: 
  Country: None (occurrence: None)
  Receive Date: 20100723
  Receipt Date: 20090514
  Transmission Date: 20110219
  Serious: Yes (Other)
  Sender: FDA-Public Use
  Company Number: US-PFIZER INC-2009183803

PATIENT
  Sex: Male

DRUGS (9)
  1. CHANTIX [Suspect]
     Indication: TOBACCO USER
     Dosage: 0.5 MG, 2X/DAY
     Dates: start: 20090112, end: 20090114
  2. KLONOPIN [Concomitant]
     Dosage: UNK
  3. AMBIEN [Concomitant]
     Dosage: UNK
  4. METOPROLOL [Concomitant]
     Dosage: UNK
  5. AMLODIPINE [Concomitant]
     Dosage: 5 MG, UNK
  6. FOLIC ACID [Concomitant]
     Dosage: UNK
  7. CLORAZEPATE DIPOTASSIUM [Concomitant]
     Dosage: UNK
  8. VALIUM [Concomitant]
     Dosage: 10 MG, UNK
  9. NEURONTIN [Concomitant]
     Dosage: 300 MG, UNK

REACTIONS (2)
  - HYPERSENSITIVITY [None]
  - URTICARIA [None]
